FAERS Safety Report 13141329 (Version 1)
Quarter: 2017Q1

REPORT INFORMATION
  Report Type: Spontaneous
  Country: US (occurrence: US)
  Receive Date: 20170123
  Receipt Date: 20170123
  Transmission Date: 20170428
  Serious: Yes (Hospitalization)
  Sender: FDA-Public Use
  Company Number: None

PATIENT
  Age: 83 Year
  Sex: Female
  Weight: 53.1 kg

DRUGS (8)
  1. LYRICA [Suspect]
     Active Substance: PREGABALIN
     Indication: NEURALGIA
     Route: 048
     Dates: start: 20161003, end: 20161030
  2. ASA [Concomitant]
     Active Substance: ASPIRIN
  3. PROAIR HFA [Concomitant]
     Active Substance: ALBUTEROL SULFATE
  4. VITS [Concomitant]
  5. VOLTAREN [Concomitant]
     Active Substance: DICLOFENAC SODIUM
  6. CATAPRES [Concomitant]
     Active Substance: CLONIDINE HYDROCHLORIDE
  7. VIT D-3 [Concomitant]
  8. ADVAIR HFA [Concomitant]
     Active Substance: FLUTICASONE PROPIONATE\SALMETEROL XINAFOATE

REACTIONS (8)
  - Dysarthria [None]
  - Depression [None]
  - Feeling abnormal [None]
  - Hypoaesthesia oral [None]
  - Pain [None]
  - Fatigue [None]
  - Swollen tongue [None]
  - Fall [None]

NARRATIVE: CASE EVENT DATE: 20161105
